FAERS Safety Report 8363785-8 (Version None)
Quarter: 2012Q2

REPORT INFORMATION
  Report Type: 
  Country: None (occurrence: None)
  Receive Date: 20120516
  Receipt Date: 20120225
  Transmission Date: 20120825
  Serious: Yes (Hospitalization, Other)
  Sender: FDA-Public Use
  Company Number: US-BAYER-2011-080659

PATIENT
  Age: 20 Year
  Sex: Female
  Weight: 73 kg

DRUGS (3)
  1. ACETAMINOPHEN [Concomitant]
  2. KETOROLAC TROMETHAMINE [Concomitant]
  3. YAZ [Suspect]
     Dosage: UNK
     Route: 048
     Dates: start: 20070701, end: 20090301

REACTIONS (4)
  - BILIARY DYSKINESIA [None]
  - CHOLECYSTECTOMY [None]
  - INJURY [None]
  - PAIN [None]
